FAERS Safety Report 5901074-9 (Version None)
Quarter: 2008Q3

REPORT INFORMATION
  Report Type: 
  Country: None (occurrence: None)
  Receive Date: 20080929
  Receipt Date: 20070820
  Transmission Date: 20090109
  Serious: No
  Sender: FDA-Public Use
  Company Number: US-BAYER-200510440BWH

PATIENT
  Age: 77 Year
  Sex: Male

DRUGS (10)
  1. AVELOX [Suspect]
     Indication: BRONCHITIS
     Dosage: TOTAL DAILY DOSE: 400 MG  UNIT DOSE: 400 MG
     Route: 042
     Dates: start: 20050228, end: 20050301
  2. ROBITUSSIN AC [Concomitant]
  3. PREDNISONE TAB [Concomitant]
  4. NORVASC [Concomitant]
  5. LISINOPRIL [Concomitant]
  6. HYDROCHLOROTHIAZIDE [Concomitant]
  7. SYNTHROID [Concomitant]
  8. INDERAL LA [Concomitant]
  9. ALBUTEROL [Concomitant]
  10. ATROVENT [Concomitant]

REACTIONS (3)
  - INFUSION SITE ERYTHEMA [None]
  - INFUSION SITE INFLAMMATION [None]
  - INFUSION SITE PRURITUS [None]
